FAERS Safety Report 4451755-1 (Version None)
Quarter: 2004Q3

REPORT INFORMATION
  Report Type: 
  Country: None (occurrence: None)
  Receive Date: 20040812
  Receipt Date: 20040430
  Transmission Date: 20050211
  Serious: No
  Sender: FDA-Public Use
  Company Number: USA040466349

PATIENT
  Age: 51 Year
  Sex: Male

DRUGS (6)
  1. CIALIS [Suspect]
  2. WELLBUTRIN [Concomitant]
  3. ATIVAN [Concomitant]
  4. CLARITIN [Concomitant]
  5. ZOCOR [Concomitant]
  6. ZANTAC [Concomitant]

REACTIONS (1)
  - PSORIASIS [None]
